FAERS Safety Report 15722214 (Version 1)
Quarter: 2018Q4

REPORT INFORMATION
  Report Type: Spontaneous
  Country: US (occurrence: US)
  Receive Date: 20181214
  Receipt Date: 20181214
  Transmission Date: 20190205
  Serious: No
  Sender: FDA-Public Use
  Company Number: US-009507513-1812USA006640

PATIENT
  Age: 44 Year
  Sex: Female

DRUGS (3)
  1. VITAMINS (UNSPECIFIED) [Concomitant]
     Active Substance: VITAMINS
     Dosage: UNK
  2. NUVARING [Suspect]
     Active Substance: ETHINYL ESTRADIOL\ETONOGESTREL
     Indication: ENDOMETRIOSIS
     Dosage: 1 RING FOR 3 WEEKS, ONE RING FREE WEEK
     Route: 067
     Dates: start: 20180802
  3. NUVARING [Suspect]
     Active Substance: ETHINYL ESTRADIOL\ETONOGESTREL
     Dosage: 1 RING FOR 3 WEEKS, ONE RING FREE WEEK
     Route: 067
     Dates: start: 201711

REACTIONS (6)
  - Drug ineffective for unapproved indication [Recovered/Resolved]
  - Premenstrual syndrome [Recovered/Resolved]
  - Hot flush [Recovered/Resolved]
  - Product use in unapproved indication [Unknown]
  - Emotional disorder [Recovered/Resolved]
  - Hormone level abnormal [Recovered/Resolved]

NARRATIVE: CASE EVENT DATE: 2017
